FAERS Safety Report 24658422 (Version 1)
Quarter: 2024Q4

REPORT INFORMATION
  Report Type: Spontaneous
  Country: CN (occurrence: CN)
  Receive Date: 20241125
  Receipt Date: 20241125
  Transmission Date: 20250114
  Serious: Yes (Death, Life-Threatening, Hospitalization)
  Sender: STRIDES
  Company Number: CN-STRIDES ARCOLAB LIMITED-2024SP015192

PATIENT
  Age: 64 Year
  Sex: Male

DRUGS (13)
  1. ETOPOSIDE [Suspect]
     Active Substance: ETOPOSIDE
     Indication: Thymic cancer metastatic
     Dosage: 100 MILLIGRAM/SQ. METER, CYCLICAL (RECEIVED DAILY FROM DAY 1 TO 3 EVERY 3 WEEKS)
     Route: 065
     Dates: start: 202101, end: 202105
  2. HYDROCORTISONE [Suspect]
     Active Substance: HYDROCORTISONE
     Indication: Metastases to bone
     Dosage: 10 MILLIGRAM, BID
     Route: 065
     Dates: start: 20211116
  3. HYDROCORTISONE [Suspect]
     Active Substance: HYDROCORTISONE
     Indication: Glucocorticoid deficiency
     Dosage: UNK (DOSE UP TITRATED)
     Route: 065
  4. AMLODIPINE [Suspect]
     Active Substance: AMLODIPINE BESYLATE
     Indication: Hypertension
     Dosage: 5 MILLIGRAM, QD
     Route: 065
  5. CISPLATIN [Suspect]
     Active Substance: CISPLATIN
     Indication: Thymic cancer metastatic
     Dosage: 30 MILLIGRAM/SQ. METER, CYCLICAL 30 MILLIGRAM/SQ. METER, QD (RECEIVED DAILY FROM DAY 1 TO 3 EVERY 3
     Route: 065
     Dates: start: 202101, end: 202105
  6. PEMBROLIZUMAB [Suspect]
     Active Substance: PEMBROLIZUMAB
     Indication: Thymic cancer metastatic
     Dosage: 200 MILLIGRAM, EVERY 3 WEEKS
     Route: 065
     Dates: start: 202111, end: 202201
  7. NETUPITANT\PALONOSETRON [Suspect]
     Active Substance: NETUPITANT\PALONOSETRON
     Indication: Prophylaxis of nausea and vomiting
     Dosage: UNK, EVERY MORNING (RECEIVED IN THE MORNING ON DAY 1 OF EACH CISPLATIN AND ETOPOSIDE CYCLE)
     Route: 065
     Dates: start: 202101, end: 202105
  8. DEXAMETHASONE [Suspect]
     Active Substance: DEXAMETHASONE
     Indication: Prophylaxis of nausea and vomiting
     Dosage: 12 MILLIGRAM, EVERY MORNING (RECEIVED IN THE MORNING ON DAY 1 OF EACH CISPLATIN AND ETOPOSIDE CYCLE)
     Route: 065
     Dates: start: 202101, end: 202105
  9. DEXAMETHASONE [Suspect]
     Active Substance: DEXAMETHASONE
     Dosage: 8 MILLIGRAM, EVERY MORNING (RECEIVED IN THE MORNING ON DAY 2 TO 4 OF EACH CISPLATIN AND ETOPOSIDE CY
     Route: 065
     Dates: start: 202101, end: 202105
  10. ZOLEDRONIC ACID [Suspect]
     Active Substance: ZOLEDRONIC ACID
     Indication: Metastases to bone
     Dosage: UNK (4 WEEKS)
     Route: 065
     Dates: start: 202101, end: 202105
  11. INSULIN GLARGINE [Suspect]
     Active Substance: INSULIN GLARGINE
     Indication: Diabetic ketoacidosis
     Dosage: UNK
     Route: 065
     Dates: start: 2022
  12. INSULIN GLARGINE [Suspect]
     Active Substance: INSULIN GLARGINE
     Dosage: UNK; INSULIN-GLARGINE MONO-THERAPY
     Route: 065
     Dates: start: 2022
  13. INSULIN NOS [Suspect]
     Active Substance: INSULIN NOS
     Indication: Diabetic ketoacidosis
     Dosage: UNK
     Route: 065
     Dates: start: 2022

REACTIONS (3)
  - Death [Fatal]
  - Neutropenia [Unknown]
  - Drug ineffective [Unknown]

NARRATIVE: CASE EVENT DATE: 20210101
